FAERS Safety Report 16698886 (Version 1)
Quarter: 2019Q3

REPORT INFORMATION
  Report Type: Spontaneous
  Country: US (occurrence: US)
  Receive Date: 20190813
  Receipt Date: 20190813
  Transmission Date: 20191004
  Serious: No
  Sender: FDA-Public Use
  Company Number: US-PERRIGO-18US008336

PATIENT
  Age: 77 Year
  Sex: Female
  Weight: 66.21 kg

DRUGS (11)
  1. ECOTRIN [Concomitant]
     Active Substance: ASPIRIN
     Indication: ROUTINE HEALTH MAINTENANCE
     Dosage: 81 MG
     Route: 048
     Dates: start: 1998
  2. LISINOPRIL. [Concomitant]
     Active Substance: LISINOPRIL
     Indication: HYPERTENSION
     Dosage: 20 MG
     Route: 048
     Dates: start: 1981
  3. ESTRADIOL. [Concomitant]
     Active Substance: ESTRADIOL
     Indication: HYPERHIDROSIS
  4. PLENDIL [Concomitant]
     Active Substance: FELODIPINE
     Indication: ROUTINE HEALTH MAINTENANCE
     Dosage: 5 MG
     Route: 048
     Dates: start: 1981
  5. FLONASE                            /00908302/ [Concomitant]
     Active Substance: MOMETASONE FUROATE
     Indication: HYPERSENSITIVITY
     Dosage: UNK
     Route: 045
     Dates: start: 2013
  6. NEXIUM [Concomitant]
     Active Substance: ESOMEPRAZOLE MAGNESIUM
     Indication: ABDOMINAL DISCOMFORT
     Dosage: 40 MG
     Route: 048
  7. CRESTOR [Concomitant]
     Active Substance: ROSUVASTATIN CALCIUM
     Indication: ROUTINE HEALTH MAINTENANCE
     Dosage: 5 MG
     Route: 048
     Dates: start: 2001
  8. ESTRADIOL. [Concomitant]
     Active Substance: ESTRADIOL
     Indication: HOT FLUSH
     Dosage: 5 MG, QD
     Route: 048
  9. METFORMIN [Concomitant]
     Active Substance: METFORMIN HYDROCHLORIDE
     Indication: TYPE 2 DIABETES MELLITUS
     Dosage: 500 MG
     Route: 048
     Dates: start: 2016
  10. LORATADINE. [Suspect]
     Active Substance: LORATADINE
     Indication: HYPERSENSITIVITY
     Dosage: 10 MG, QD IN AM
     Route: 048
     Dates: start: 20180807, end: 201808
  11. LORATADINE. [Suspect]
     Active Substance: LORATADINE
     Dosage: 10 MG, QD IN AM
     Route: 048
     Dates: start: 20180815, end: 20180816

REACTIONS (2)
  - Hyperhidrosis [Recovered/Resolved]
  - Hot flush [Recovered/Resolved]

NARRATIVE: CASE EVENT DATE: 20180808
